FAERS Safety Report 8894031 (Version 1)
Quarter: 2012Q4

REPORT INFORMATION
  Report Type: 
  Country: US (occurrence: US)
  Receive Date: 20121108
  Receipt Date: 20121108
  Transmission Date: 20130627
  Serious: Yes (Other)
  Sender: FDA-Public Use
  Company Number: US-MILLENNIUM PHARMACEUTICALS, INC.-2012-07669

PATIENT
  Age: 54 Year
  Sex: Female

DRUGS (8)
  1. VELCADE [Suspect]
     Indication: AMYLOIDOSIS
     Dosage: 1.3 mg/m2, Cyclic
  2. CYCLOPHOSPHAMIDE [Suspect]
     Indication: AMYLOIDOSIS
     Dosage: 300 mg, Cyclic
     Route: 042
  3. REVLIMID [Suspect]
     Indication: AMYLOIDOSIS
     Dosage: 15 mg, Cyclic
  4. REVLIMID [Suspect]
     Dosage: 10 mg, Cyclic
  5. THALIDOMIDE [Suspect]
     Indication: AMYLOIDOSIS
     Dosage: 150 mg, Cyclic
  6. THALIDOMIDE [Suspect]
     Dosage: 100 mg, Cyclic
  7. DEXAMETHASONE [Suspect]
     Indication: AMYLOIDOSIS
     Dosage: 10 mg, Cyclic
  8. DEXAMETHASONE [Suspect]
     Dosage: 20 mg, Cyclic

REACTIONS (2)
  - Fluid overload [Unknown]
  - Neuropathy peripheral [Unknown]
